FAERS Safety Report 23666848 (Version 1)
Quarter: 2024Q1

REPORT INFORMATION
  Report Type: Report from Study
  Country: US (occurrence: US)
  Receive Date: 20240325
  Receipt Date: 20240325
  Transmission Date: 20240409
  Serious: Yes (Hospitalization, Other)
  Sender: FDA-Public Use
  Company Number: US-ABBVIE-5690229

PATIENT
  Age: 58 Year
  Sex: Female

DRUGS (1)
  1. SKYRIZI [Suspect]
     Active Substance: RISANKIZUMAB-RZAA
     Indication: Psoriasis
     Route: 058
     Dates: start: 20230719

REACTIONS (3)
  - Stress fracture [Not Recovered/Not Resolved]
  - Fall [Not Recovered/Not Resolved]
  - Back pain [Not Recovered/Not Resolved]

NARRATIVE: CASE EVENT DATE: 20240303
